FAERS Safety Report 17467939 (Version 1)
Quarter: 2020Q1

REPORT INFORMATION
  Report Type: Spontaneous
  Country: US (occurrence: US)
  Receive Date: 20200214
  Receipt Date: 20200214
  Transmission Date: 20200409
  Serious: No
  Sender: FDA-Public Use
  Company Number: None

PATIENT
  Age: 68 Year
  Sex: Male

DRUGS (2)
  1. INLYTA [Suspect]
     Active Substance: AXITINIB
     Indication: RENAL CANCER
     Route: 048
     Dates: start: 20191120
  2. INLYTA [Suspect]
     Active Substance: AXITINIB
     Indication: METASTASES TO BONE

REACTIONS (3)
  - Weight decreased [None]
  - Decreased appetite [None]
  - Ageusia [None]

NARRATIVE: CASE EVENT DATE: 201911
